FAERS Safety Report 6221116-3 (Version None)
Quarter: 2009Q2

REPORT INFORMATION
  Report Type: 
  Country: None (occurrence: None)
  Receive Date: 20090610
  Receipt Date: 20090608
  Transmission Date: 20091009
  Serious: Yes (Hospitalization, Other)
  Sender: FDA-Public Use
  Company Number: B0577900A

PATIENT
  Sex: Male

DRUGS (9)
  1. PAROXETINE HCL [Suspect]
     Indication: DEPRESSION
     Dosage: 20MG PER DAY
     Route: 048
  2. ASPEGIC 1000 [Suspect]
     Dosage: 250MG PER DAY
     Route: 048
  3. FRAGMIN [Suspect]
     Dosage: 5000IU PER DAY
     Route: 058
  4. ZYLORIC [Concomitant]
     Indication: GOUT
     Dosage: 100MG PER DAY
     Route: 048
  5. XATRAL LP [Concomitant]
     Dosage: 10MG PER DAY
     Route: 048
  6. AMLOR [Concomitant]
     Dosage: 10MG PER DAY
     Route: 048
  7. TENORMIN [Concomitant]
     Dosage: 50MG PER DAY
     Route: 048
  8. TAHOR [Concomitant]
     Dosage: 10MG PER DAY
     Route: 048
  9. MEMANTINE [Concomitant]
     Dosage: 5MG PER DAY
     Route: 048

REACTIONS (6)
  - GENERAL PHYSICAL HEALTH DETERIORATION [None]
  - HYPOTENSION [None]
  - MELAENA [None]
  - NORMOCHROMIC NORMOCYTIC ANAEMIA [None]
  - PALLOR [None]
  - TACHYCARDIA [None]
